FAERS Safety Report 10089554 (Version 3)
Quarter: 2014Q4

REPORT INFORMATION
  Report Type: Spontaneous
  Country: CA (occurrence: CA)
  Receive Date: 20140421
  Receipt Date: 20141030
  Transmission Date: 20150528
  Serious: Yes (Hospitalization, Other)
  Sender: FDA-Public Use
  Company Number: CA-SA-2014SA048729

PATIENT
  Age: 59 Year
  Sex: Female

DRUGS (1)
  1. TUBERSOL [Suspect]
     Active Substance: TUBERCULIN PURIFIED PROTEIN DERIVATIVE
     Indication: TUBERCULIN TEST
     Route: 023
     Dates: start: 20131001, end: 20131001

REACTIONS (4)
  - Axillary pain [Unknown]
  - Dysgeusia [Unknown]
  - Dysphagia [Unknown]
  - Flushing [Unknown]

NARRATIVE: CASE EVENT DATE: 20131001
